FAERS Safety Report 18302166 (Version 1)
Quarter: 2020Q3

REPORT INFORMATION
  Report Type: Spontaneous
  Country: CA (occurrence: CA)
  Receive Date: 20200923
  Receipt Date: 20200923
  Transmission Date: 20201103
  Serious: Yes (Other)
  Sender: FDA-Public Use
  Company Number: CA-TEVA-2020-CA-1830298

PATIENT
  Age: 53 Year
  Sex: Female

DRUGS (16)
  1. TOCILIZUMAB. [Suspect]
     Active Substance: TOCILIZUMAB
     Route: 065
  2. PREDNISONE. [Concomitant]
     Active Substance: PREDNISONE
     Route: 065
  3. TRIDURAL [Concomitant]
     Active Substance: TRAMADOL HYDROCHLORIDE
  4. MYCOPHENOLATE MOFETIL. [Suspect]
     Active Substance: MYCOPHENOLATE MOFETIL
     Route: 065
  5. CIPROFLOXACIN. [Suspect]
     Active Substance: CIPROFLOXACIN
     Route: 065
  6. HUMIRA [Suspect]
     Active Substance: ADALIMUMAB
     Route: 058
  7. HYDROXYCHLOROQUINE SULFATE. [Suspect]
     Active Substance: HYDROXYCHLOROQUINE SULFATE
     Route: 065
  8. SULFASALAZINE. [Suspect]
     Active Substance: SULFASALAZINE
     Route: 065
  9. AZATHIOPRINE. [Suspect]
     Active Substance: AZATHIOPRINE
     Route: 065
  10. ORENCIA [Suspect]
     Active Substance: ABATACEPT
     Route: 065
  11. METHOTREXATE. [Suspect]
     Active Substance: METHOTREXATE
     Route: 065
  12. ACTEMRA [Suspect]
     Active Substance: TOCILIZUMAB
     Route: 065
  13. ENBREL [Suspect]
     Active Substance: ETANERCEPT
     Route: 065
  14. RITUXIMAB. [Suspect]
     Active Substance: RITUXIMAB
     Route: 065
  15. AMOXICILLIN SODIUM/CLAVULANATE POTASSIUM [Suspect]
     Active Substance: AMOXICILLIN\CLAVULANATE POTASSIUM
     Route: 065
  16. REMICADE [Suspect]
     Active Substance: INFLIXIMAB
     Route: 042

REACTIONS (16)
  - C-reactive protein abnormal [Unknown]
  - Interstitial lung disease [Unknown]
  - Treatment failure [Unknown]
  - Chronic kidney disease [Unknown]
  - Drug ineffective [Unknown]
  - Joint stiffness [Unknown]
  - Sepsis [Unknown]
  - Burning sensation [Unknown]
  - Drug intolerance [Unknown]
  - Synovitis [Unknown]
  - Bone erosion [Unknown]
  - Drug hypersensitivity [Unknown]
  - Contraindicated product administered [Unknown]
  - Diverticulitis [Unknown]
  - Musculoskeletal stiffness [Unknown]
  - Systemic lupus erythematosus [Unknown]
